FAERS Safety Report 5185979-5 (Version None)
Quarter: 2006Q4

REPORT INFORMATION
  Report Type: 
  Country: None (occurrence: None)
  Receive Date: 20061220
  Receipt Date: 20061006
  Transmission Date: 20070319
  Serious: No
  Sender: FDA-Public Use
  Company Number: US-GLAXOSMITHKLINE-A0622724A

PATIENT
  Age: 61 Year
  Sex: Female

DRUGS (4)
  1. TARGET NTS 21MG [Suspect]
     Dates: start: 20060914
  2. ADVAIR DISKUS 100/50 [Suspect]
  3. ACCOLATE [Suspect]
  4. SYNTHROID [Suspect]

REACTIONS (1)
  - NERVOUSNESS [None]
